FAERS Safety Report 4854159-2 (Version None)
Quarter: 2005Q4

REPORT INFORMATION
  Report Type: 
  Country: None (occurrence: None)
  Receive Date: 20051213
  Receipt Date: 20051130
  Transmission Date: 20060501
  Serious: Yes (Other)
  Sender: FDA-Public Use
  Company Number: A-US2005-10960

PATIENT
  Age: 34 Year
  Sex: Female

DRUGS (14)
  1. TRACLEER [Suspect]
     Indication: PULMONARY HYPERTENSION
     Dosage: 125 MG, BID, ORAL; SEE IMAGE
     Route: 048
     Dates: start: 20020318, end: 20020401
  2. TRACLEER [Suspect]
     Indication: PULMONARY HYPERTENSION
     Dosage: 125 MG, BID, ORAL; SEE IMAGE
     Route: 048
     Dates: start: 20020401, end: 20051027
  3. TRACLEER [Suspect]
     Indication: PULMONARY HYPERTENSION
     Dosage: 125 MG, BID, ORAL; SEE IMAGE
     Route: 048
     Dates: start: 20051129
  4. FLOLAN [Concomitant]
  5. LISINOPRIL [Concomitant]
  6. LASIX [Concomitant]
  7. POTASSIUM (POTASSIUM) [Concomitant]
  8. COUMADIN [Concomitant]
  9. ZYRTEC [Concomitant]
  10. AMBIEN [Concomitant]
  11. DIGOXIN [Concomitant]
  12. TRUVADA [Concomitant]
  13. SUSTIVA [Concomitant]
  14. LORTAB [Concomitant]

REACTIONS (3)
  - ABORTION INDUCED [None]
  - DRUG EXPOSURE DURING PREGNANCY [None]
  - PREGNANCY [None]
